FAERS Safety Report 19414873 (Version 1)
Quarter: 2021Q2

REPORT INFORMATION
  Report Type: Spontaneous
  Country: GB (occurrence: GB)
  Receive Date: 20210615
  Receipt Date: 20210615
  Transmission Date: 20210717
  Serious: Yes (Other)
  Sender: FDA-Public Use
  Company Number: GB-SUN PHARMACEUTICAL INDUSTRIES LTD-2021RR-300462

PATIENT
  Sex: Female

DRUGS (1)
  1. PREGABALIN. [Suspect]
     Active Substance: PREGABALIN
     Indication: PRODUCT USED FOR UNKNOWN INDICATION
     Dosage: UNK (HIGHEST DOSE)
     Route: 065

REACTIONS (4)
  - Sciatica [Unknown]
  - Drug dependence [Unknown]
  - Pain [Not Recovered/Not Resolved]
  - Hypoaesthesia [Unknown]

NARRATIVE: CASE EVENT DATE: 20181105
